FAERS Safety Report 7417061-8 (Version None)
Quarter: 2011Q2

REPORT INFORMATION
  Report Type: 
  Country: None (occurrence: None)
  Receive Date: 20110412
  Receipt Date: 20110412
  Transmission Date: 20111010
  Serious: Yes (Disabling, Other)
  Sender: FDA-Public Use
  Company Number: None

PATIENT
  Age: 33 Year
  Sex: Male
  Weight: 83.9154 kg

DRUGS (1)
  1. GABAPENTIN [Suspect]
     Indication: TREMOR
     Dosage: 300MG 1 TO 2 CAPS TID PO
     Route: 048
     Dates: start: 20110312, end: 20110314

REACTIONS (8)
  - HYPOAESTHESIA [None]
  - PERONEAL NERVE PALSY [None]
  - PRODUCT PACKAGING QUANTITY ISSUE [None]
  - CLUMSINESS [None]
  - DYSARTHRIA [None]
  - SEDATION [None]
  - GAIT DISTURBANCE [None]
  - AMNESIA [None]
